FAERS Safety Report 11613538 (Version 1)
Quarter: 2015Q4

REPORT INFORMATION
  Report Type: Spontaneous
  Country: US (occurrence: US)
  Receive Date: 20151008
  Receipt Date: 20151008
  Transmission Date: 20160304
  Serious: No
  Sender: FDA-Public Use
  Company Number: US-BAYER-2015-433585

PATIENT
  Age: 2 Year
  Sex: Male

DRUGS (2)
  1. MIRALAX [Suspect]
     Active Substance: POLYETHYLENE GLYCOL 3350
     Indication: CONSTIPATION
  2. CHILDREN CLARITIN ALLERGY [Suspect]
     Active Substance: LORATADINE
     Route: 048

REACTIONS (4)
  - Pain [Unknown]
  - Muscle strain [Unknown]
  - Product use issue [Unknown]
  - Constipation [Unknown]

NARRATIVE: CASE EVENT DATE: 20150928
